FAERS Safety Report 9910346 (Version 2)
Quarter: 2014Q1

REPORT INFORMATION
  Report Type: Spontaneous
  Country: JP (occurrence: JP)
  Receive Date: 20140219
  Receipt Date: 20140225
  Transmission Date: 20141002
  Serious: Yes (Death)
  Sender: FDA-Public Use
  Company Number: JP-PFIZER INC-2014042067

PATIENT
  Sex: 0

DRUGS (13)
  1. SERTRALINE HCL [Suspect]
     Dosage: UNK
  2. AMOXAPINE [Suspect]
     Dosage: UNK
  3. CODEINE [Suspect]
     Dosage: UNK
  4. DEXTROMETHORPHAN HBR [Suspect]
     Dosage: UNK
  5. DIAZEPAM [Suspect]
     Dosage: UNK
  6. FLUVOXAMINE MALEATE [Suspect]
     Dosage: UNK
  7. BIPERIDEN HYDROCHLORIDE [Suspect]
     Dosage: UNK
  8. CHLORPHENIRAMINE [Suspect]
     Dosage: UNK
  9. METHYLEPHEDRINE/METHYLEPHEDRINE HYDROCHLORIDE-D L [Suspect]
     Dosage: UNK
  10. ACETAMINOPHEN [Suspect]
     Dosage: UNK
  11. BROMOVALERYLUREA [Suspect]
     Dosage: UNK
  12. CAFFEINE [Suspect]
     Dosage: UNK
  13. ETHENZAMIDE [Suspect]
     Dosage: UNK

REACTIONS (2)
  - Toxicity to various agents [Fatal]
  - Completed suicide [Fatal]
